FAERS Safety Report 5443983-3 (Version None)
Quarter: 2007Q3

REPORT INFORMATION
  Report Type: 
  Country: None (occurrence: None)
  Receive Date: 20070831
  Receipt Date: 20070816
  Transmission Date: 20080115
  Serious: Yes (Hospitalization)
  Sender: FDA-Public Use
  Company Number: 2007S1007686

PATIENT
  Age: 70 Year
  Sex: Female
  Weight: 94.3482 kg

DRUGS (9)
  1. ACEBUTOLOL HCL [Suspect]
     Indication: BLOOD PRESSURE
     Dosage: 200 MG;X2 A DAY;ORAL; 200 M G;X3 A DAY;ORAL; 100 MG;ASNEEDED;ORAL; 200 MG;X1;ORAL
     Route: 048
     Dates: start: 20070801, end: 20070801
  2. ACEBUTOLOL HCL [Suspect]
     Indication: VENTRICULAR EXTRASYSTOLES
     Dosage: 200 MG;X2 A DAY;ORAL; 200 M G;X3 A DAY;ORAL; 100 MG;ASNEEDED;ORAL; 200 MG;X1;ORAL
     Route: 048
     Dates: start: 20070801, end: 20070801
  3. ACEBUTOLOL HCL [Suspect]
     Indication: BLOOD PRESSURE
     Dosage: 200 MG;X2 A DAY;ORAL; 200 M G;X3 A DAY;ORAL; 100 MG;ASNEEDED;ORAL; 200 MG;X1;ORAL
     Route: 048
     Dates: end: 20070801
  4. ACEBUTOLOL HCL [Suspect]
     Indication: VENTRICULAR EXTRASYSTOLES
     Dosage: 200 MG;X2 A DAY;ORAL; 200 M G;X3 A DAY;ORAL; 100 MG;ASNEEDED;ORAL; 200 MG;X1;ORAL
     Route: 048
     Dates: end: 20070801
  5. ACEBUTOLOL HCL [Suspect]
     Indication: BLOOD PRESSURE
     Dosage: 200 MG;X2 A DAY;ORAL; 200 M G;X3 A DAY;ORAL; 100 MG;ASNEEDED;ORAL; 200 MG;X1;ORAL
     Route: 048
     Dates: start: 20070801
  6. ACEBUTOLOL HCL [Suspect]
     Indication: VENTRICULAR EXTRASYSTOLES
     Dosage: 200 MG;X2 A DAY;ORAL; 200 M G;X3 A DAY;ORAL; 100 MG;ASNEEDED;ORAL; 200 MG;X1;ORAL
     Route: 048
     Dates: start: 20070801
  7. LEVOTHYROXINE SODIUM [Concomitant]
  8. AMBIEN [Concomitant]
  9. ALPRAZOLAM [Concomitant]

REACTIONS (8)
  - BLOOD PRESSURE INCREASED [None]
  - CHEST PAIN [None]
  - DRUG INEFFECTIVE [None]
  - DYSPNOEA [None]
  - FATIGUE [None]
  - FEELING ABNORMAL [None]
  - MEDICATION ERROR [None]
  - PHARMACEUTICAL PRODUCT COMPLAINT [None]
